FAERS Safety Report 6291532-2 (Version None)
Quarter: 2009Q3

REPORT INFORMATION
  Report Type: 
  Country: None (occurrence: None)
  Receive Date: 20090730
  Receipt Date: 20090720
  Transmission Date: 20100115
  Serious: Yes (Hospitalization)
  Sender: FDA-Public Use
  Company Number: DE-ELI_LILLY_AND_COMPANY-DE200907004265

PATIENT
  Age: 59 Year
  Sex: Female

DRUGS (7)
  1. ZYPREXA [Suspect]
     Indication: ANXIETY DISORDER
     Dosage: 5 MG, DAILY (1/D)
     Route: 048
     Dates: start: 20090412, end: 20090501
  2. ZYPREXA [Suspect]
     Dosage: 10 MG, DAILY (1/D)
     Route: 048
     Dates: start: 20090720
  3. VENLAFAXINE HCL [Concomitant]
     Dosage: 75 MG, DAILY (1/D)
     Route: 048
     Dates: start: 20090412, end: 20090414
  4. VENLAFAXINE HCL [Concomitant]
     Dosage: 150 MG, DAILY (1/D)
     Route: 048
     Dates: start: 20090415, end: 20090501
  5. HYDROCHLOROTHIAZIDE [Concomitant]
     Dosage: 25 MG, DAILY (1/D)
     Route: 048
  6. OBSIDAN [Concomitant]
     Dosage: 25 MG, DAILY (1/D)
     Route: 048
  7. PANTOZOL [Concomitant]
     Dosage: 20 MG, DAILY (1/D)
     Route: 048

REACTIONS (2)
  - MANIA [None]
  - OFF LABEL USE [None]
